FAERS Safety Report 8198055-4 (Version None)
Quarter: 2012Q1

REPORT INFORMATION
  Report Type: 
  Country: None (occurrence: None)
  Receive Date: 20120309
  Receipt Date: 20120215
  Transmission Date: 20120608
  Serious: No
  Sender: FDA-Public Use
  Company Number: US-AMGEN-USASP2012007405

PATIENT
  Age: 74 Year
  Sex: Female
  Weight: 79 kg

DRUGS (9)
  1. MULTI-VITAMIN [Concomitant]
     Dosage: UNK
  2. IBUPROFEN [Concomitant]
     Dosage: UNK
  3. TORISEL [Concomitant]
     Dosage: 25 MG, UNK
     Dates: start: 20110518
  4. CALCIUM + VITAMIN D [Concomitant]
     Dosage: UNK
  5. AMBIEN [Concomitant]
  6. ZOMETA [Concomitant]
     Dosage: UNK
  7. CELEBREX [Concomitant]
     Dosage: UNK
  8. XGEVA [Suspect]
     Indication: RENAL CANCER
     Dosage: 120 MG, Q3MO
     Route: 058
     Dates: start: 20110629, end: 20110629
  9. TYLENOL [Concomitant]
     Dosage: UNK

REACTIONS (4)
  - ARTHRALGIA [None]
  - PAIN IN EXTREMITY [None]
  - MYALGIA [None]
  - MUSCLE SPASMS [None]
